FAERS Safety Report 6137210-1 (Version None)
Quarter: 2009Q1

REPORT INFORMATION
  Report Type: 
  Country: None (occurrence: None)
  Receive Date: 20090330
  Receipt Date: 20090323
  Transmission Date: 20090719
  Serious: Yes (Other)
  Sender: FDA-Public Use
  Company Number: GB-BRISTOL-MYERS SQUIBB COMPANY-14561500

PATIENT
  Age: 45 Year

DRUGS (5)
  1. VIDEX [Suspect]
     Indication: ANTIRETROVIRAL THERAPY
  2. STAVUDINE [Suspect]
     Indication: ANTIRETROVIRAL THERAPY
  3. LOPINAVIR AND RITONAVIR [Suspect]
     Indication: ANTIRETROVIRAL THERAPY
  4. NEVIRAPINE [Suspect]
     Indication: ANTIRETROVIRAL THERAPY
  5. LAMIVUDINE [Suspect]
     Indication: ANTIRETROVIRAL THERAPY

REACTIONS (3)
  - BLOOD CHOLESTEROL INCREASED [None]
  - LIPODYSTROPHY ACQUIRED [None]
  - MYOCARDIAL INFARCTION [None]
